FAERS Safety Report 14918480 (Version 5)
Quarter: 2018Q3

REPORT INFORMATION
  Report Type: Spontaneous
  Country: DE (occurrence: DE)
  Receive Date: 20180521
  Receipt Date: 20180820
  Transmission Date: 20181010
  Serious: Yes (Hospitalization, Other)
  Sender: FDA-Public Use
  Company Number: DE-TEVA-2018-DE-895243

PATIENT
  Age: 26 Year
  Sex: Female
  Weight: 100 kg

DRUGS (3)
  1. IBEROGAST [Interacting]
     Active Substance: HERBALS
     Indication: ABDOMINAL DISCOMFORT
     Route: 065
     Dates: start: 20180216, end: 20180218
  2. IBEROGAST [Interacting]
     Active Substance: HERBALS
     Route: 048
     Dates: start: 201802, end: 20180218
  3. MTX [Suspect]
     Active Substance: METHOTREXATE SODIUM
     Indication: T-CELL TYPE ACUTE LEUKAEMIA
     Route: 065
     Dates: start: 20180220, end: 20180222

REACTIONS (3)
  - Drug interaction [Unknown]
  - Hepatotoxicity [Unknown]
  - Drug level increased [Unknown]

NARRATIVE: CASE EVENT DATE: 201802
